FAERS Safety Report 7375534-0 (Version None)
Quarter: 2011Q1

REPORT INFORMATION
  Report Type: 
  Country: None (occurrence: None)
  Receive Date: 20110325
  Receipt Date: 20091122
  Transmission Date: 20110831
  Serious: Yes (Death, Other)
  Sender: FDA-Public Use
  Company Number: US-BAYER-201041952NA

PATIENT
  Sex: Female
  Weight: 181.41 kg

DRUGS (16)
  1. DEMADEX [Concomitant]
     Dosage: 40 MG, QD
     Route: 048
     Dates: start: 20051031
  2. PERCOCET [Concomitant]
     Indication: PAIN
     Dosage: PRN
     Route: 048
  3. TRASYLOL [Suspect]
     Indication: CARDIAC OPERATION
     Dosage: UNK
     Dates: start: 20051215
  4. ISORBIDE [Concomitant]
     Dosage: UNK
     Route: 048
     Dates: start: 20051031
  5. ACETYLSALICYLIC ACID SRT [Concomitant]
     Dosage: 81 MG, UNK
     Route: 048
  6. INSULIN [Concomitant]
     Route: 058
  7. ZOLOFT [Concomitant]
  8. PLAVIX [Concomitant]
     Dosage: 75 MG, QD
     Route: 048
     Dates: start: 20051031
  9. PROTONIX [Concomitant]
     Dosage: UNK UNK, ONCE
     Route: 048
  10. ATROVENT [Concomitant]
     Dosage: 2 PUFFS EVERY 6 HOURS INHALER
  11. LISINOPRIL [Concomitant]
     Dosage: 20 MG, UNK
     Route: 048
     Dates: start: 20051031
  12. LOPRESSOR [Concomitant]
     Dosage: 50 MG, BID
     Route: 048
     Dates: start: 20051031
  13. ZETIA [Concomitant]
     Dosage: 10 MG
  14. ZOCOR [Concomitant]
     Dosage: 60 MG, UNK
     Route: 048
  15. SYNTHROID [Concomitant]
     Dosage: UNK UNK, ONCE
     Route: 048
  16. HYDRALAZINE HCL [Concomitant]
     Dosage: UNK
     Route: 048
     Dates: start: 20051031

REACTIONS (12)
  - RENAL INJURY [None]
  - INJURY [None]
  - UNEVALUABLE EVENT [None]
  - DEATH [None]
  - RENAL IMPAIRMENT [None]
  - EMOTIONAL DISTRESS [None]
  - MULTI-ORGAN FAILURE [None]
  - ANXIETY [None]
  - STRESS [None]
  - PAIN [None]
  - RENAL FAILURE [None]
  - FEAR [None]
